FAERS Safety Report 14678963 (Version 12)
Quarter: 2019Q1

REPORT INFORMATION
  Report Type: Spontaneous
  Country: DE (occurrence: DE)
  Receive Date: 20180326
  Receipt Date: 20190201
  Transmission Date: 20190417
  Serious: Yes (Hospitalization, Other)
  Sender: FDA-Public Use
  Company Number: PHHY2015DE177645

PATIENT

DRUGS (22)
  1. TOCILIZUMAB. [Suspect]
     Active Substance: TOCILIZUMAB
     Dosage: 162 MG, 12 DAY
     Route: 058
     Dates: start: 20170706, end: 20171025
  2. CORTISONE ACETATE. [Concomitant]
     Active Substance: CORTISONE ACETATE
     Indication: PRODUCT USED FOR UNKNOWN INDICATION
     Dosage: 10 MG, UNK
     Route: 065
  3. NADROPARINE [Suspect]
     Active Substance: NADROPARIN
     Indication: VENOUS THROMBOSIS LIMB
     Dosage: UNK
     Route: 065
  4. PROLIA [Suspect]
     Active Substance: DENOSUMAB
     Indication: OSTEOPOROSIS
     Dosage: 60 MG, QMO
     Route: 058
     Dates: start: 201405
  5. ESCITALOPRAM [Concomitant]
     Active Substance: ESCITALOPRAM OXALATE
     Dosage: 5 GTT, UNK
     Route: 048
  6. CLEXANE [Suspect]
     Active Substance: ENOXAPARIN SODIUM
     Indication: VENOUS THROMBOSIS LIMB
     Dosage: UNK
     Route: 065
  7. TOCILIZUMAB. [Suspect]
     Active Substance: TOCILIZUMAB
     Indication: MYALGIA
     Dosage: 162 MG, QW
     Route: 058
     Dates: start: 20140601, end: 201506
  8. TOCILIZUMAB. [Suspect]
     Active Substance: TOCILIZUMAB
     Indication: VASCULITIS
     Dosage: 162 MG, UNK (162 MG, 14 DAY)
     Route: 058
     Dates: start: 20170414, end: 20171025
  9. CORTISONE [Concomitant]
     Active Substance: CORTISONE\HYDROCORTISONE
     Indication: PRODUCT USED FOR UNKNOWN INDICATION
     Dosage: 10 MG, UNK
     Route: 065
  10. ESCITALOPRAM [Concomitant]
     Active Substance: ESCITALOPRAM OXALATE
     Indication: PRODUCT USED FOR UNKNOWN INDICATION
     Dosage: 8 GTT, UNK
     Route: 048
  11. TOCILIZUMAB. [Suspect]
     Active Substance: TOCILIZUMAB
     Dosage: 162 MG, BID
     Route: 058
     Dates: start: 20180131
  12. TOCILIZUMAB. [Suspect]
     Active Substance: TOCILIZUMAB
     Dosage: 162 MG, (162 MG, UNK, EVERY 10 DAY AND EVERY 14 DAY)
     Route: 058
     Dates: start: 20180414
  13. FRAXIPARIN [Suspect]
     Active Substance: NADROPARIN CALCIUM
     Indication: VENOUS THROMBOSIS LIMB
     Dosage: UNK
     Route: 065
  14. TOCILIZUMAB. [Suspect]
     Active Substance: TOCILIZUMAB
     Indication: RHEUMATOID ARTHRITIS
     Dosage: 324 MG, QD
     Route: 058
     Dates: end: 201506
  15. ESCITALOPRAM [Concomitant]
     Active Substance: ESCITALOPRAM OXALATE
     Dosage: 10 GTT, QD
     Route: 048
  16. QUETIAPINE. [Suspect]
     Active Substance: QUETIAPINE
     Indication: PRODUCT USED FOR UNKNOWN INDICATION
     Dosage: 25 MG, QD
     Route: 065
  17. TOCILIZUMAB. [Suspect]
     Active Substance: TOCILIZUMAB
     Dosage: 162 MG,  14 DAY
     Route: 058
  18. TOCILIZUMAB. [Suspect]
     Active Substance: TOCILIZUMAB
     Dosage: 162 MG, UNK (162 MG, 14 DAY)
     Route: 058
     Dates: start: 20180414
  19. LISIHEXAL [Concomitant]
     Active Substance: LISINOPRIL
     Indication: PRODUCT USED FOR UNKNOWN INDICATION
     Dosage: 20 MG, UNK
     Route: 065
  20. COLECALCIFEROL [Suspect]
     Active Substance: CHOLECALCIFEROL
     Indication: OSTEOPOROSIS
     Dosage: 1000 IU, UNK
     Route: 048
  21. TOCILIZUMAB. [Suspect]
     Active Substance: TOCILIZUMAB
     Dosage: 162 MG, QW
     Route: 058
     Dates: start: 201811
  22. PANTOPRAZOLE [Concomitant]
     Active Substance: PANTOPRAZOLE
     Indication: PRODUCT USED FOR UNKNOWN INDICATION
     Dosage: UNK
     Route: 065

REACTIONS (21)
  - Prostate cancer [Recovered/Resolved]
  - Sleep disorder [Unknown]
  - Soft tissue disorder [Recovered/Resolved]
  - Impaired healing [Recovered/Resolved]
  - Platelet count decreased [Unknown]
  - Lymphoedema [Recovered/Resolved]
  - Lymphocele [Recovered/Resolved]
  - Off label use [Unknown]
  - Inappropriate schedule of product administration [Unknown]
  - Depression [Not Recovered/Not Resolved]
  - Suture rupture [Recovered/Resolved]
  - Rash erythematous [Unknown]
  - Erysipelas [Recovering/Resolving]
  - Venous thrombosis limb [Not Recovered/Not Resolved]
  - Leukopenia [Recovering/Resolving]
  - Dysuria [Unknown]
  - Sepsis [Recovering/Resolving]
  - Autoimmune disorder [Unknown]
  - Hyperaesthesia [Unknown]
  - Fall [Unknown]
  - Product use in unapproved indication [Unknown]

NARRATIVE: CASE EVENT DATE: 201407
